FAERS Safety Report 9502618 (Version 1)
Quarter: 2013Q3

REPORT INFORMATION
  Report Type: Spontaneous
  Country: US (occurrence: US)
  Receive Date: 20130906
  Receipt Date: 20130906
  Transmission Date: 20140515
  Serious: Yes (Hospitalization)
  Sender: FDA-Public Use
  Company Number: US-SANOFI-AVENTIS-2013SA088935

PATIENT
  Age: 31 Year
  Sex: Female

DRUGS (1)
  1. LANTUS [Suspect]
     Route: 065
     Dates: start: 201303

REACTIONS (1)
  - Mental disorder [Unknown]
